FAERS Safety Report 5294506-3 (Version None)
Quarter: 2007Q2

REPORT INFORMATION
  Report Type: 
  Country: None (occurrence: None)
  Receive Date: 20070406
  Receipt Date: 20070323
  Transmission Date: 20071010
  Serious: Yes (Hospitalization)
  Sender: FDA-Public Use
  Company Number: CERZ-11579

PATIENT
  Age: 68 Year
  Sex: Female

DRUGS (1)
  1. CEREZYME [Suspect]
     Indication: GAUCHER'S DISEASE
     Dates: start: 19970429

REACTIONS (6)
  - CARDIAC INFECTION [None]
  - FAECAL INCONTINENCE [None]
  - KIDNEY INFECTION [None]
  - LUNG INFECTION [None]
  - MALAISE [None]
  - URINARY INCONTINENCE [None]
